FAERS Safety Report 16839675 (Version 2)
Quarter: 2020Q3

REPORT INFORMATION
  Report Type: Spontaneous
  Country: US (occurrence: US)
  Receive Date: 20190923
  Receipt Date: 20200827
  Transmission Date: 20201102
  Serious: Yes (Other)
  Sender: FDA-Public Use
  Company Number: US-GILEAD-2019-0429306

PATIENT
  Age: 55 Year
  Sex: Female
  Weight: 158.73 kg

DRUGS (51)
  1. AMOXICILLIN AND CLAVULA. POTASSIUM [AMOXICILLIN;CLAVULANATE POTASSIUM] [Concomitant]
     Active Substance: AMOXICILLIN\CLAVULANATE POTASSIUM
  2. CARVEDILOL. [Concomitant]
     Active Substance: CARVEDILOL
  3. VITAMIN D [VITAMIN D NOS] [Concomitant]
     Active Substance: VITAMIN D NOS
  4. DULCOLAX BALANCE [Concomitant]
     Active Substance: POLYETHYLENE GLYCOL 3350
  5. AVELOX [Concomitant]
     Active Substance: MOXIFLOXACIN HYDROCHLORIDE
  6. AZITHROMYCIN ANHYDROUS. [Concomitant]
     Active Substance: AZITHROMYCIN ANHYDROUS
  7. DULOXETINE. [Concomitant]
     Active Substance: DULOXETINE
  8. LEVOFLOXACIN. [Concomitant]
     Active Substance: LEVOFLOXACIN
  9. NIFEDIPINE. [Concomitant]
     Active Substance: NIFEDIPINE
  10. TERBINAFINE. [Concomitant]
     Active Substance: TERBINAFINE
  11. TIZANIDINE. [Concomitant]
     Active Substance: TIZANIDINE
  12. ZOLPIDEM [Concomitant]
     Active Substance: ZOLPIDEM TARTRATE
  13. ATRIPLA [Suspect]
     Active Substance: EFAVIRENZ\EMTRICITABINE\TENOFOVIR DISOPROXIL FUMARATE
     Indication: HIV INFECTION
     Dosage: UNK
     Route: 048
     Dates: start: 20090723, end: 20171018
  14. ODEFSEY [Concomitant]
     Active Substance: EMTRICITABINE\RILPIVIRINE HYDROCHLORIDE\TENOFOVIR ALAFENAMIDE FUMARATE
  15. ACETAMINOPHEN;HYDROCODONE [Concomitant]
     Active Substance: ACETAMINOPHEN\HYDROCODONE
  16. LISINOPRIL. [Concomitant]
     Active Substance: LISINOPRIL
  17. RANITIDINE. [Concomitant]
     Active Substance: RANITIDINE
  18. SEVELAMER CARBONATE AL [Concomitant]
  19. NAPROXEN. [Concomitant]
     Active Substance: NAPROXEN
  20. NORTRIPTYLINE [Concomitant]
     Active Substance: NORTRIPTYLINE
  21. TRAMADOL. [Concomitant]
     Active Substance: TRAMADOL
  22. LIQUACEL [Concomitant]
  23. IRON [Concomitant]
     Active Substance: IRON
  24. AMLODIPINE BENAZEPRIL [Concomitant]
     Active Substance: AMLODIPINE BESYLATE\BENAZEPRIL HYDROCHLORIDE
  25. BUMETANIDE. [Concomitant]
     Active Substance: BUMETANIDE
  26. CYCLOBENZAPRINE. [Concomitant]
     Active Substance: CYCLOBENZAPRINE
  27. CYCLOSPORINE. [Concomitant]
     Active Substance: CYCLOSPORINE
  28. GABAPENTIN. [Concomitant]
     Active Substance: GABAPENTIN
  29. GUAIFENESIN. [Concomitant]
     Active Substance: GUAIFENESIN
  30. LORATADINE. [Concomitant]
     Active Substance: LORATADINE
  31. METHOCARBAMOL. [Concomitant]
     Active Substance: METHOCARBAMOL
  32. ALLOPURINOL. [Concomitant]
     Active Substance: ALLOPURINOL
  33. ATORVASTATIN [Concomitant]
     Active Substance: ATORVASTATIN
  34. PREDNISONE. [Concomitant]
     Active Substance: PREDNISONE
  35. SULFAMETH/TRIMETH [Concomitant]
     Active Substance: SULFAMETHOXAZOLE\TRIMETHOPRIM
  36. BENADRYL ALLERGY [Concomitant]
     Active Substance: DIPHENHYDRAMINE HYDROCHLORIDE
  37. FLUCONAZOLE. [Concomitant]
     Active Substance: FLUCONAZOLE
  38. HYDROCHLOROTHIAZIDE. [Concomitant]
     Active Substance: HYDROCHLOROTHIAZIDE
  39. HYDROXYZINE HCL [Concomitant]
     Active Substance: HYDROXYZINE HYDROCHLORIDE
  40. MELOXICAM. [Concomitant]
     Active Substance: MELOXICAM
  41. SERTRALINE [Concomitant]
     Active Substance: SERTRALINE HYDROCHLORIDE
  42. TEMAZEPAM. [Concomitant]
     Active Substance: TEMAZEPAM
  43. CLONIDINE. [Concomitant]
     Active Substance: CLONIDINE
  44. FUROSEMIDE. [Concomitant]
     Active Substance: FUROSEMIDE
  45. IBUPROFEN. [Concomitant]
     Active Substance: IBUPROFEN
  46. LOPRESSOR [Concomitant]
     Active Substance: METOPROLOL TARTRATE
  47. METHYLPREDNISOLONE. [Concomitant]
     Active Substance: METHYLPREDNISOLONE
  48. OXYCODONE AND ACETAMINOPHEN [Concomitant]
     Active Substance: ACETAMINOPHEN\OXYCODONE HYDROCHLORIDE
  49. WARFARIN [Concomitant]
     Active Substance: WARFARIN
  50. LOSARTAN. [Concomitant]
     Active Substance: LOSARTAN
  51. ZOFRAN [Concomitant]
     Active Substance: ONDANSETRON HYDROCHLORIDE

REACTIONS (11)
  - End stage renal disease [Unknown]
  - Mobility decreased [Not Recovered/Not Resolved]
  - Emotional distress [Not Recovered/Not Resolved]
  - Pain [Not Recovered/Not Resolved]
  - Renal failure [Not Recovered/Not Resolved]
  - Economic problem [Not Recovered/Not Resolved]
  - Chronic kidney disease [Unknown]
  - Quality of life decreased [Not Recovered/Not Resolved]
  - Anxiety [Not Recovered/Not Resolved]
  - Anhedonia [Not Recovered/Not Resolved]
  - Fatigue [Unknown]

NARRATIVE: CASE EVENT DATE: 20180302
